FAERS Safety Report 8416640 (Version 4)
Quarter: 2012Q4

REPORT INFORMATION
  Report Type: Report from Study
  Country: JP (occurrence: JP)
  Receive Date: 20120220
  Receipt Date: 20120907
  Transmission Date: 20130627
  Serious: Yes (Death)
  Sender: FDA-Public Use
  Company Number: JP-PFIZER INC-2012042085

PATIENT
  Age: 74 Year
  Sex: Male
  Weight: 82 kg

DRUGS (7)
  1. EDARAVONE [Suspect]
     Indication: EMBOLIC STROKE
     Dosage: 30 mg, 2x/day
     Route: 041
     Dates: start: 20110905, end: 20110905
  2. ARGATROBAN [Suspect]
     Indication: EMBOLIC STROKE
     Dosage: 60 mg, UNK
     Route: 041
     Dates: start: 20110905, end: 20110905
  3. OZAGREL [Suspect]
     Indication: EMBOLIC STROKE
     Dosage: 80 mg, UNK
     Route: 041
     Dates: start: 20110905, end: 20110905
  4. GRTPA [Concomitant]
     Indication: EMBOLIC STROKE
     Dosage: 28.536 MU, 1 in 1 D
     Route: 042
     Dates: start: 20110905, end: 20110905
  5. BAYASPIRIN [Concomitant]
     Indication: EMBOLIC STROKE
     Dosage: 100 mg, UNK
     Route: 048
     Dates: start: 20110906, end: 20110911
  6. BAYASPIRIN [Concomitant]
     Dosage: 100 mg, UNK
     Route: 048
     Dates: start: 20110913, end: 20110917
  7. LIVALO [Concomitant]
     Indication: HYPERLIPIDAEMIA
     Dosage: 2 mg, UNK
     Route: 048
     Dates: start: 20110906, end: 20110911

REACTIONS (1)
  - Interstitial lung disease [Fatal]
